FAERS Safety Report 10161391 (Version 2)
Quarter: 2014Q2

REPORT INFORMATION
  Report Type: Spontaneous
  Country: US (occurrence: US)
  Receive Date: 20140509
  Receipt Date: 20140509
  Transmission Date: 20141212
  Serious: Yes (Disabling, Other)
  Sender: FDA-Public Use
  Company Number: US-BEH-2013038888

PATIENT
  Sex: Female

DRUGS (2)
  1. HIZENTRA [Suspect]
     Route: 058
  2. GAMMAGARD [Suspect]

REACTIONS (1)
  - Neuromyopathy [Unknown]
